FAERS Safety Report 9613283 (Version 2)
Quarter: 2014Q1

REPORT INFORMATION
  Report Type: Spontaneous
  Country: IL (occurrence: IL)
  Receive Date: 20131010
  Receipt Date: 20140306
  Transmission Date: 20141002
  Serious: Yes (Hospitalization)
  Sender: FDA-Public Use
  Company Number: IL-TEVA-436569ISR

PATIENT
  Age: 78 Year
  Sex: Male
  Weight: 85 kg

DRUGS (7)
  1. METFORMIN [Suspect]
     Indication: TYPE 2 DIABETES MELLITUS
     Dosage: 850 MILLIGRAM DAILY;
     Route: 065
  2. ASPIRIN [Concomitant]
     Dosage: 75 MILLIGRAM DAILY;
     Route: 065
  3. PRAVASTATIN [Concomitant]
     Dosage: 20 MILLIGRAM DAILY;
     Route: 065
  4. AMLODIPINE [Concomitant]
     Dosage: 5 MILLIGRAM DAILY;
     Route: 065
  5. ATENOLOL [Concomitant]
     Dosage: 100 MILLIGRAM DAILY;
     Route: 065
  6. CANDESARTAN CILEXETIL [Concomitant]
     Dosage: 16 MILLIGRAM DAILY;
     Route: 065
  7. HYDROCHLOROTHIAZIDE [Concomitant]
     Dosage: 12.5 MILLIGRAM DAILY;
     Route: 065

REACTIONS (1)
  - Mixed liver injury [Recovered/Resolved]
